FAERS Safety Report 9395957 (Version 1)
Quarter: 2013Q3

REPORT INFORMATION
  Report Type: Spontaneous
  Country: US (occurrence: US)
  Receive Date: 20130711
  Receipt Date: 20130711
  Transmission Date: 20140515
  Serious: No
  Sender: FDA-Public Use
  Company Number: US-PFIZER INC-2013203057

PATIENT
  Age: 54 Year
  Sex: Female

DRUGS (5)
  1. XELJANZ [Suspect]
     Indication: RHEUMATOID ARTHRITIS
     Dosage: 5 MG, 2X/DAY (1 TABLET TWICE A DAY)
     Route: 048
     Dates: start: 20130318, end: 20130626
  2. ECOTRIN [Concomitant]
     Dosage: 325 MG, UNK
  3. GLUCOVANCE [Concomitant]
     Dosage: 2.5-500, UNK
  4. LORTAB [Concomitant]
     Dosage: 7.5-500, UNK
  5. DIOVAN HCT [Concomitant]
     Dosage: 160-12, UNK

REACTIONS (1)
  - Sinusitis [Recovered/Resolved]
